FAERS Safety Report 9007811 (Version 1)
Quarter: 2013Q1

REPORT INFORMATION
  Report Type: Spontaneous
  Country: US (occurrence: US)
  Receive Date: 20130111
  Receipt Date: 20130111
  Transmission Date: 20140127
  Serious: Yes (Other)
  Sender: FDA-Public Use
  Company Number: US-009507513-0907USA03764

PATIENT
  Age: 5 Year
  Sex: Male
  Weight: 22.23 kg

DRUGS (1)
  1. SINGULAIR [Suspect]
     Indication: MULTIPLE ALLERGIES
     Dosage: 5 MG, QD
     Route: 048
     Dates: start: 20081001, end: 20081109

REACTIONS (6)
  - Abnormal behaviour [Unknown]
  - Anger [Unknown]
  - Disturbance in attention [Unknown]
  - Impatience [Unknown]
  - Irritability [Unknown]
  - Restlessness [Unknown]
